FAERS Safety Report 12774781 (Version 1)
Quarter: 2016Q3

REPORT INFORMATION
  Report Type: Spontaneous
  Country: JP (occurrence: JP)
  Receive Date: 20160923
  Receipt Date: 20160923
  Transmission Date: 20161109
  Serious: Yes (Life-Threatening)
  Sender: FDA-Public Use
  Company Number: JP-MALLINCKRODT-T201604404

PATIENT
  Age: 78 Year
  Sex: Male
  Weight: 57 kg

DRUGS (15)
  1. OFIRMEV [Suspect]
     Active Substance: ACETAMINOPHEN
     Indication: PYREXIA
     Dosage: TOTAL SINGLE DOSE: 400 MG (GIVEN AS 40ML/HR)
     Route: 042
     Dates: start: 20160408, end: 20160408
  2. POTASSIUM ASPARTATE [Concomitant]
     Active Substance: POTASSIUM ASPARTATE
     Dosage: UNK
     Route: 042
     Dates: start: 20160302
  3. INTRALIPOS [Concomitant]
     Active Substance: SOYBEAN OIL
     Dosage: UNK
     Route: 042
     Dates: start: 20160402
  4. AMIPAREN [Concomitant]
     Active Substance: AMINO ACIDS
     Dosage: UNK
     Route: 042
     Dates: start: 20160302
  5. METOPROLOL TARTRATE. [Concomitant]
     Active Substance: METOPROLOL TARTRATE
     Dosage: UNK
     Route: 042
     Dates: start: 20160302
  6. FUROSEMIDE. [Concomitant]
     Active Substance: FUROSEMIDE
     Dosage: UNK
     Route: 042
     Dates: start: 20160304
  7. MORPHINE HYDROCHLORIDE TRIHYDRATE [Concomitant]
     Dosage: UNK
     Route: 042
     Dates: start: 20160302
  8. OFIRMEV [Suspect]
     Active Substance: ACETAMINOPHEN
     Indication: ANTIPYRESIS
     Dosage: TOTAL SINGLE DOSE: 1000 MG (GIVEN AS 400ML/HR)
     Route: 042
     Dates: start: 20160403, end: 20160403
  9. HICALIQ [Concomitant]
     Active Substance: CALCIUM GLUCONATE\DEXTROSE\MAGNESIUM SULFATE\POTASSIUM ACETATE\POTASSIUM PHOSPHATE, DIBASIC\ZINC SULFATE
     Dosage: UNK
     Route: 042
     Dates: start: 20160302
  10. MULTAMIN [Concomitant]
     Dosage: UNK
     Route: 042
     Dates: start: 20160302
  11. GASTER [Concomitant]
     Active Substance: FAMOTIDINE
     Dosage: UNK
     Route: 042
     Dates: start: 20160302
  12. SODIUM PHOSPHATE [Concomitant]
     Active Substance: SODIUM PHOSPHATE
     Dosage: UNK
     Route: 042
     Dates: start: 20160402
  13. ECABET NA [Concomitant]
     Dosage: UNK
     Route: 048
     Dates: start: 20160302
  14. REBAMIPIDE [Concomitant]
     Active Substance: REBAMIPIDE
     Dosage: UNK
     Route: 048
     Dates: start: 20160302
  15. MARZULENE [Concomitant]
     Active Substance: SODIUM GUALENATE
     Dosage: UNK
     Route: 048
     Dates: start: 20160302

REACTIONS (3)
  - Blood pressure decreased [Recovered/Resolved]
  - Hyperhidrosis [Recovered/Resolved]
  - Miliaria [Recovered/Resolved]

NARRATIVE: CASE EVENT DATE: 20160403
